FAERS Safety Report 8089104-2 (Version None)
Quarter: 2012Q1

REPORT INFORMATION
  Report Type: 
  Country: None (occurrence: None)
  Receive Date: 20120128
  Receipt Date: 20110708
  Transmission Date: 20120608
  Serious: No
  Sender: FDA-Public Use
  Company Number: US-ABBOTT-11P-163-0838172-00

PATIENT
  Sex: Female
  Weight: 116.22 kg

DRUGS (19)
  1. NORVASC [Concomitant]
     Indication: HYPERTENSION
  2. POTASSIUM CHLORIDE [Concomitant]
     Indication: ELECTROLYTE SUBSTITUTION THERAPY
  3. VALIUM [Concomitant]
     Indication: MUSCLE SPASMS
  4. OMEPRAZOLE [Concomitant]
     Indication: GASTRIC ULCER
  5. OMEPRAZOLE [Concomitant]
  6. LASIX [Concomitant]
     Indication: HYPERTENSION
  7. VALIUM [Concomitant]
  8. METHOTREXATE [Suspect]
     Indication: UVEITIS
     Dates: start: 20110613
  9. ROBAXIN [Concomitant]
     Indication: MUSCLE SPASMS
  10. FOLIC ACID [Concomitant]
     Indication: VITAMIN SUPPLEMENTATION
  11. MULTI-VITAMIN [Concomitant]
     Indication: VITAMIN SUPPLEMENTATION
  12. VALIUM [Concomitant]
  13. VITAMIN D [Concomitant]
     Indication: VITAMIN SUPPLEMENTATION
  14. LEXAPRO [Concomitant]
     Indication: ANXIETY
  15. VITAMIN D [Concomitant]
  16. HUMIRA [Suspect]
     Indication: UVEITIS
     Dates: start: 20090825, end: 20110301
  17. HUMIRA [Suspect]
     Dates: start: 20110401
  18. CATAPRES [Concomitant]
     Indication: HYPERTENSION
  19. PREDNISONE TAB [Concomitant]
     Indication: UVEITIS

REACTIONS (7)
  - FATIGUE [None]
  - LIVER FUNCTION TEST ABNORMAL [None]
  - NAUSEA [None]
  - DEHYDRATION [None]
  - UVEITIS [None]
  - MACULE [None]
  - HEADACHE [None]
